FAERS Safety Report 8388953-0 (Version None)
Quarter: 2012Q2

REPORT INFORMATION
  Report Type: 
  Country: None (occurrence: None)
  Receive Date: 20120528
  Receipt Date: 20120517
  Transmission Date: 20120825
  Serious: Yes (Hospitalization)
  Sender: FDA-Public Use
  Company Number: US-PAR PHARMACEUTICAL, INC-2012SCPR004387

PATIENT

DRUGS (13)
  1. TAFAMIDIS MEGLUMINE [Suspect]
     Dosage: 20 MG, 1X/DAY
     Route: 048
     Dates: start: 20120417
  2. ACETYLSALICYLIC ACID SRT [Concomitant]
     Indication: CARDIAC FAILURE CONGESTIVE
     Dosage: UNK, UNKNOWN
     Route: 065
  3. WARFARIN SODIUM [Concomitant]
     Indication: ATRIAL FIBRILLATION
     Dosage: UNK UNK, UNKNOWN
     Route: 065
  4. OMEPRAZOLE [Concomitant]
     Indication: GASTROOESOPHAGEAL REFLUX DISEASE
     Dosage: UNK, UNKNOWN
     Route: 065
     Dates: start: 20110601
  5. SIMVASTATIN [Concomitant]
     Indication: CORONARY ARTERY DISEASE
     Dosage: UNK UNK, UNKNOWN
     Route: 065
     Dates: start: 20111209
  6. METOLAZONE [Concomitant]
     Indication: CARDIAC FAILURE CONGESTIVE
     Dosage: UNK, UNKNOWN
     Route: 065
     Dates: start: 20120106
  7. MEGESTROL ACETATE [Suspect]
     Indication: CACHEXIA
     Dosage: 1 TEASPOON DAILY
     Route: 048
     Dates: start: 20120201, end: 20120316
  8. BUMETANIDE [Concomitant]
     Indication: CARDIAC FAILURE CONGESTIVE
     Dosage: UNK UNK, UNKNOWN
     Route: 065
     Dates: start: 20110411
  9. TAFAMIDIS MEGLUMINE [Suspect]
     Indication: FAMILIAL AMYLOIDOSIS
     Dosage: 20 MG, 1X/DAY
     Route: 048
     Dates: start: 20081022, end: 20120409
  10. INSPRA [Concomitant]
     Indication: CARDIAC FAILURE CONGESTIVE
     Dosage: UNK, UNKNOWN
     Route: 065
  11. ALLOPURINOL [Concomitant]
     Indication: GOUT
     Dosage: UNK, UNKNOWN
     Route: 065
     Dates: start: 20111010
  12. PROCRIT [Concomitant]
     Indication: BLOOD ERYTHROPOIETIN DECREASED
     Dosage: UNK, UNKNOWN
     Route: 065
     Dates: start: 20110505
  13. POTASSIUM CHLORIDE [Concomitant]
     Indication: HYPOKALAEMIA
     Dosage: UNK, UNKNOWN
     Route: 065
     Dates: start: 20120320

REACTIONS (2)
  - CARDIAC FAILURE [None]
  - CONDITION AGGRAVATED [None]
